FAERS Safety Report 10083261 (Version 1)
Quarter: 2014Q2

REPORT INFORMATION
  Report Type: Spontaneous
  Country: US (occurrence: None)
  Receive Date: 20140415
  Receipt Date: 20140415
  Transmission Date: 20141212
  Serious: Yes (Disabling)
  Sender: FDA-Public Use
  Company Number: None

PATIENT
  Age: 43 Year
  Sex: Female
  Weight: 74.84 kg

DRUGS (1)
  1. VYANSE [Suspect]
     Indication: ATTENTION DEFICIT/HYPERACTIVITY DISORDER
     Dosage: 1 PILL (EXTENDED RELEASE), ONCE DAILY, TAKEN BY MOUTH
     Route: 048

REACTIONS (4)
  - Oesophageal hypomotility [None]
  - Tremor [None]
  - Incontinence [None]
  - Muscle twitching [None]
